FAERS Safety Report 13852477 (Version 1)
Quarter: 2017Q3

REPORT INFORMATION
  Report Type: Spontaneous
  Country: US (occurrence: US)
  Receive Date: 20170809
  Receipt Date: 20170809
  Transmission Date: 20171127
  Serious: No
  Sender: FDA-Public Use
  Company Number: US-ROCHE-636593

PATIENT
  Age: 48 Year
  Sex: Male

DRUGS (4)
  1. PEPCID [Suspect]
     Active Substance: FAMOTIDINE
     Indication: PRODUCT USED FOR UNKNOWN INDICATION
     Route: 065
  2. BONIVA [Suspect]
     Active Substance: IBANDRONATE SODIUM
     Indication: PRODUCT USED FOR UNKNOWN INDICATION
     Route: 048
  3. AMBIEN [Concomitant]
     Active Substance: ZOLPIDEM TARTRATE
     Dosage: FREQUENCY: EVERY NIGHT
     Route: 065
  4. HYOSCYAMINE. [Suspect]
     Active Substance: HYOSCYAMINE
     Indication: ABDOMINAL RIGIDITY
     Route: 048

REACTIONS (3)
  - Constipation [Unknown]
  - Abdominal pain [Recovering/Resolving]
  - Irritable bowel syndrome [Unknown]

NARRATIVE: CASE EVENT DATE: 20090521
